FAERS Safety Report 7204845-4 (Version None)
Quarter: 2010Q4

REPORT INFORMATION
  Report Type: 
  Country: None (occurrence: None)
  Receive Date: 20101217
  Receipt Date: 20101206
  Transmission Date: 20110411
  Serious: Yes (Hospitalization, Other)
  Sender: FDA-Public Use
  Company Number: TPA2010A06116

PATIENT
  Age: 73 Year
  Sex: Female
  Weight: 100.6985 kg

DRUGS (12)
  1. ACTOS [Suspect]
     Indication: TYPE 2 DIABETES MELLITUS
     Dosage: 1 IN 1 D, PER ORAL ; 1 IN 1 D ; 45 MG, 1 N 1 D, PER ORAL
     Route: 048
     Dates: end: 20101115
  2. ACTOS [Suspect]
     Indication: TYPE 2 DIABETES MELLITUS
     Dosage: 1 IN 1 D, PER ORAL ; 1 IN 1 D ; 45 MG, 1 N 1 D, PER ORAL
     Route: 048
     Dates: start: 20020101
  3. METFORMIN HCL [Concomitant]
  4. LOSARTAN POTASSIUM [Concomitant]
  5. METOPROLOL SUCCINATE [Concomitant]
  6. SPIRONOLACOTNE (SPIRONOLACTONE) [Concomitant]
  7. FUROSEMIDE [Concomitant]
  8. AMLODIPINE [Concomitant]
  9. SIMVASTATIN [Concomitant]
  10. MELOXICAM [Concomitant]
  11. BABY ASPIRIN (ACETYLSALICYLIC ACDI) [Concomitant]
  12. ZYRTEC [Concomitant]

REACTIONS (8)
  - CARDIAC FAILURE CONGESTIVE [None]
  - CYSTITIS [None]
  - HYPERTONIC BLADDER [None]
  - INFLUENZA LIKE ILLNESS [None]
  - INSOMNIA [None]
  - NOCTURIA [None]
  - SLEEP DISORDER [None]
  - STAPHYLOCOCCAL INFECTION [None]
